FAERS Safety Report 23063199 (Version 2)
Quarter: 2025Q3

REPORT INFORMATION
  Report Type: Spontaneous
  Country: US (occurrence: US)
  Receive Date: 20231013
  Receipt Date: 20250826
  Transmission Date: 20251020
  Serious: No
  Sender: SANOFI AVENTIS
  Company Number: US-SA-2023SA306854

PATIENT
  Age: 60 Year
  Sex: Male
  Weight: 78.64 kg

DRUGS (7)
  1. DUPIXENT [Suspect]
     Active Substance: DUPILUMAB
     Indication: NSAID exacerbated respiratory disease
     Dosage: 300 MG, QOW
     Route: 065
  2. DUPIXENT [Suspect]
     Active Substance: DUPILUMAB
     Dosage: 300 MG, QOW
     Route: 065
  3. HYDROCHLOROTHIAZIDE\LOSARTAN [Concomitant]
     Active Substance: HYDROCHLOROTHIAZIDE\LOSARTAN
  4. PULMICORT TURBUHALER [Concomitant]
     Active Substance: BUDESONIDE
  5. MONTELUKAST SODIUM [Concomitant]
     Active Substance: MONTELUKAST SODIUM
  6. OMEPRAZOLE [Concomitant]
     Active Substance: OMEPRAZOLE
  7. LORATADINE [Concomitant]
     Active Substance: LORATADINE

REACTIONS (5)
  - Cough [Unknown]
  - Rebound effect [Unknown]
  - Sleep disorder due to a general medical condition [Unknown]
  - Rebound effect [Unknown]
  - Off label use [Unknown]
